FAERS Safety Report 19050591 (Version 3)
Quarter: 2021Q2

REPORT INFORMATION
  Report Type: Report from Study
  Country: IT (occurrence: IT)
  Receive Date: 20210323
  Receipt Date: 20210526
  Transmission Date: 20210717
  Serious: Yes (Other)
  Sender: FDA-Public Use
  Company Number: IT-INCYTE CORPORATION-2021IN002542

PATIENT

DRUGS (10)
  1. JAKAVI [Suspect]
     Active Substance: RUXOLITINIB
     Dosage: 30 UNK
     Route: 048
     Dates: start: 20191012, end: 20201118
  2. JAKAVI [Suspect]
     Active Substance: RUXOLITINIB
     Dosage: 20 UNK
     Route: 065
     Dates: start: 20190409, end: 20190704
  3. PERSANTIN [Concomitant]
     Active Substance: DIPYRIDAMOLE
     Indication: CARDIOVASCULAR EVENT PROPHYLAXIS
     Dosage: 75 UNK
     Route: 065
     Dates: start: 201607
  4. JAKAVI [Suspect]
     Active Substance: RUXOLITINIB
     Dosage: 20 MG (DAILY)
     Route: 065
  5. SIMVASTATIN. [Concomitant]
     Active Substance: SIMVASTATIN
     Indication: HYPERCHOLESTEROLAEMIA
     Dosage: 10 UNK
     Route: 065
     Dates: start: 20190605
  6. JAKAVI [Suspect]
     Active Substance: RUXOLITINIB
     Dosage: 15 UNK
     Route: 048
     Dates: start: 20181229, end: 20190408
  7. JAKAVI [Suspect]
     Active Substance: RUXOLITINIB
     Dosage: 15 UNK
     Route: 065
     Dates: start: 20190705, end: 20191011
  8. JAKAVI [Suspect]
     Active Substance: RUXOLITINIB
     Indication: POLYCYTHAEMIA VERA
     Dosage: 20 UNK
     Route: 048
     Dates: start: 20181109, end: 20181228
  9. ESOMEPRAZOLO [Concomitant]
     Active Substance: ESOMEPRAZOLE
     Indication: PROPHYLAXIS
     Dosage: 20 MG, DAILY
     Route: 048
     Dates: start: 201607
  10. EUTIROX [Concomitant]
     Active Substance: LEVOTHYROXINE SODIUM
     Indication: HYPOTHYROIDISM
     Dosage: 100 UNK
     Route: 065
     Dates: start: 20190701

REACTIONS (12)
  - Platelet disorder [Not Recovered/Not Resolved]
  - Portosplenomesenteric venous thrombosis [Recovering/Resolving]
  - Anaemia [Recovered/Resolved]
  - Eye pain [Recovered/Resolved]
  - Dizziness [Recovered/Resolved]
  - Leukocytosis [Not Recovered/Not Resolved]
  - Rhinalgia [Recovered/Resolved]
  - Anaemia [Recovered/Resolved]
  - Arthralgia [Unknown]
  - Abdominal discomfort [Recovered/Resolved]
  - Asthenia [Recovered/Resolved]
  - Platelet count increased [Not Recovered/Not Resolved]

NARRATIVE: CASE EVENT DATE: 20181228
